FAERS Safety Report 6835952-3 (Version None)
Quarter: 2010Q3

REPORT INFORMATION
  Report Type: 
  Country: None (occurrence: None)
  Receive Date: 20100713
  Receipt Date: 20100706
  Transmission Date: 20110219
  Serious: Yes (Life-Threatening, Hospitalization)
  Sender: FDA-Public Use
  Company Number: A0862002A

PATIENT
  Age: 73 Year
  Sex: Male

DRUGS (16)
  1. ADVAIR DISKUS 100/50 [Suspect]
     Indication: CHRONIC OBSTRUCTIVE PULMONARY DISEASE
     Dosage: 1PUFF TWICE PER DAY
     Route: 055
  2. VENTOLIN [Suspect]
     Indication: CHRONIC OBSTRUCTIVE PULMONARY DISEASE
     Route: 055
  3. MAGNESIUM OXIDE [Concomitant]
  4. LISINOPRIL [Concomitant]
  5. LIPITOR [Concomitant]
  6. ISOSORBIDE [Concomitant]
  7. RANEXA [Concomitant]
  8. PLAVIX [Concomitant]
  9. TRICOR [Concomitant]
  10. NITROSTAT [Concomitant]
  11. FLOMAX [Concomitant]
  12. TRAVATAN [Concomitant]
  13. PROTONIX [Concomitant]
  14. NORVASC [Concomitant]
  15. LOVAZA [Concomitant]
     Dates: start: 20090601
  16. COREG [Concomitant]
     Dates: start: 20090601

REACTIONS (1)
  - MYOCARDIAL INFARCTION [None]
